FAERS Safety Report 15167411 (Version 1)
Quarter: 2018Q3

REPORT INFORMATION
  Report Type: Spontaneous
  Country: JP (occurrence: JP)
  Receive Date: 20180719
  Receipt Date: 20180719
  Transmission Date: 20181010
  Serious: Yes (Hospitalization, Other)
  Sender: FDA-Public Use
  Company Number: JP-PFIZER INC-2018282579

PATIENT
  Age: 57 Year
  Sex: Male
  Weight: 67.4 kg

DRUGS (9)
  1. FEBURIC [Concomitant]
     Active Substance: FEBUXOSTAT
  2. FLUCONAZOLE. [Concomitant]
     Active Substance: FLUCONAZOLE
  3. MAGNESIUM OXIDE. [Concomitant]
     Active Substance: MAGNESIUM OXIDE
  4. CYLOCIDE [Suspect]
     Active Substance: CYTARABINE
     Indication: ACUTE MYELOID LEUKAEMIA
     Dosage: 190 MG, 1X/DAY
     Route: 041
     Dates: start: 20171221, end: 20171227
  5. MAXIPIME [Concomitant]
     Active Substance: CEFEPIME HYDROCHLORIDE
     Dosage: 1 G, 4X/DAY
     Dates: end: 20171225
  6. SOLU?CORTEF [Concomitant]
     Active Substance: HYDROCORTISONE SODIUM SUCCINATE
  7. IDAMYCIN [Suspect]
     Active Substance: IDARUBICIN HYDROCHLORIDE
     Indication: ACUTE MYELOID LEUKAEMIA
     Dosage: 23 MG, 1X/DAY
     Route: 041
     Dates: start: 20171221, end: 20171223
  8. NEXIUM [Concomitant]
     Active Substance: ESOMEPRAZOLE MAGNESIUM
  9. FUROSEMIDE TEVA [Concomitant]
     Active Substance: FUROSEMIDE

REACTIONS (11)
  - Skin swelling [Recovering/Resolving]
  - Bacterial infection [Recovering/Resolving]
  - Skin lesion [Recovering/Resolving]
  - C-reactive protein increased [Unknown]
  - White blood cell count decreased [Recovered/Resolved]
  - Erythema [Recovering/Resolving]
  - Pain of skin [Recovering/Resolving]
  - Pancytopenia [Unknown]
  - Platelet count decreased [Recovered/Resolved]
  - Scab [None]
  - Skin erosion [None]

NARRATIVE: CASE EVENT DATE: 20171225
